FAERS Safety Report 13338522 (Version 1)
Quarter: 2017Q1

REPORT INFORMATION
  Report Type: Spontaneous
  Country: US (occurrence: US)
  Receive Date: 20170315
  Receipt Date: 20170315
  Transmission Date: 20170428
  Serious: No
  Sender: FDA-Public Use
  Company Number: US-LPDUSPRD-20161000

PATIENT
  Sex: Female

DRUGS (1)
  1. ESTRADIOL VALERATE INJECTION, USP (0870-05) [Suspect]
     Active Substance: ESTRADIOL VALERATE
     Dosage: 1CC INJECTED INTO HIP
     Route: 065
     Dates: start: 20160801, end: 20160801

REACTIONS (2)
  - Wrong technique in product usage process [Recovered/Resolved]
  - Oedema [Recovered/Resolved]

NARRATIVE: CASE EVENT DATE: 20160801
